FAERS Safety Report 21342763 (Version 2)
Quarter: 2022Q3

REPORT INFORMATION
  Report Type: Spontaneous
  Country: IN (occurrence: IN)
  Receive Date: 20220916
  Receipt Date: 20220929
  Transmission Date: 20221027
  Serious: Yes (Other)
  Sender: FDA-Public Use
  Company Number: IN-NOVARTISPH-NVSC2022IN208787

PATIENT
  Age: 64 Year
  Sex: Male

DRUGS (1)
  1. BROLUCIZUMAB [Suspect]
     Active Substance: BROLUCIZUMAB
     Indication: Product used for unknown indication
     Dosage: 6 MG (2 INJECTIONS)
     Route: 031

REACTIONS (3)
  - Retinal occlusive vasculitis [Unknown]
  - Vitreous floaters [Unknown]
  - Retinal oedema [Unknown]

NARRATIVE: CASE EVENT DATE: 20220906
